FAERS Safety Report 6560756-9 (Version None)
Quarter: 2010Q1

REPORT INFORMATION
  Report Type: 
  Country: None (occurrence: None)
  Receive Date: 20100129
  Receipt Date: 20050317
  Transmission Date: 20100710
  Serious: No
  Sender: FDA-Public Use
  Company Number: US-ALLERGAN-200502994

PATIENT
  Age: 51 Year
  Sex: Female

DRUGS (3)
  1. BOTOX [Suspect]
     Indication: PAIN
     Route: 030
  2. DEPAKOTE [Concomitant]
     Indication: TRIGEMINAL NEURALGIA
     Route: 048
  3. TRILEPTAL [Concomitant]
     Indication: TRIGEMINAL NEURALGIA
     Dosage: 1200MG, QD
     Route: 048

REACTIONS (2)
  - DIARRHOEA [None]
  - NECK PAIN [None]
